FAERS Safety Report 6735070-9 (Version None)
Quarter: 2010Q2

REPORT INFORMATION
  Report Type: 
  Country: None (occurrence: None)
  Receive Date: 20100521
  Receipt Date: 20100510
  Transmission Date: 20101027
  Serious: Yes (Other)
  Sender: FDA-Public Use
  Company Number: CA-JNJFOC-20100305166

PATIENT
  Sex: Female

DRUGS (3)
  1. MOTRIN IB [Suspect]
     Route: 048
  2. MOTRIN IB [Suspect]
     Indication: DYSMENORRHOEA
     Route: 048
  3. CIPROFLOXACIN [Suspect]
     Indication: INFECTION

REACTIONS (7)
  - BLOOD PRESSURE INCREASED [None]
  - CONFUSIONAL STATE [None]
  - DIZZINESS [None]
  - MALAISE [None]
  - NAUSEA [None]
  - POLLAKIURIA [None]
  - WHITE BLOOD CELL COUNT INCREASED [None]
